FAERS Safety Report 22173509 (Version 1)
Quarter: 2023Q2

REPORT INFORMATION
  Report Type: Spontaneous
  Country: US (occurrence: US)
  Receive Date: 20230404
  Receipt Date: 20230404
  Transmission Date: 20230721
  Serious: Yes (Other)
  Sender: FDA-Public Use
  Company Number: US-002147023-NVSC2023US076562

PATIENT
  Age: 90 Year
  Sex: Female

DRUGS (4)
  1. BEOVU [Suspect]
     Active Substance: BROLUCIZUMAB-DBLL
     Indication: Age-related macular degeneration
     Dosage: UNK (TIME FROM PREVIOUS 74, LEFT EYE)
     Route: 065
     Dates: start: 20191202
  2. BEOVU [Suspect]
     Active Substance: BROLUCIZUMAB-DBLL
     Dosage: UNK (TIME FROM PREVIOUS 70, LEFT EYE)
     Route: 065
     Dates: start: 20200405
  3. BEOVU [Suspect]
     Active Substance: BROLUCIZUMAB-DBLL
     Dosage: UNK (TIME FROM PREVIOUS 84, LEFT EYE)
     Route: 065
     Dates: start: 20200504
  4. BEOVU [Suspect]
     Active Substance: BROLUCIZUMAB-DBLL
     Dosage: UNK
     Route: 065
     Dates: start: 20200810

REACTIONS (4)
  - Uveitis [Recovered/Resolved]
  - Vitreous haemorrhage [Unknown]
  - Eye inflammation [Recovered/Resolved]
  - Visual impairment [Unknown]

NARRATIVE: CASE EVENT DATE: 20200516
